FAERS Safety Report 5842232-1 (Version None)
Quarter: 2008Q3

REPORT INFORMATION
  Report Type: 
  Country: None (occurrence: None)
  Receive Date: 20080731
  Receipt Date: 20080324
  Transmission Date: 20090109
  Serious: No
  Sender: FDA-Public Use
  Company Number: US200801001867

PATIENT
  Age: 75 Year
  Sex: Male
  Weight: 106.6 kg

DRUGS (7)
  1. BYETTA [Suspect]
     Indication: TYPE 2 DIABETES MELLITUS
     Dosage: 5 UG, 2/D, SUBCUTANEOUS, 10 UG, 2/D, SUBCUTANEOUS
     Route: 058
     Dates: start: 20080105, end: 20080201
  2. BYETTA [Suspect]
  3. METFORMIN HCL [Concomitant]
  4. ACTOS [Concomitant]
  5. TIMOLOL MALEATE [Concomitant]
  6. TRAVATAN [Concomitant]
  7. XANAX [Concomitant]

REACTIONS (6)
  - BLOOD GLUCOSE DECREASED [None]
  - DIZZINESS [None]
  - DRUG INEFFECTIVE [None]
  - FEELING ABNORMAL [None]
  - INJECTION SITE HAEMATOMA [None]
  - VISUAL ACUITY REDUCED [None]
